FAERS Safety Report 19282548 (Version 2)
Quarter: 2021Q3

REPORT INFORMATION
  Report Type: Report from Study
  Country: FR (occurrence: FR)
  Receive Date: 20210520
  Receipt Date: 20210714
  Transmission Date: 20211014
  Serious: Yes (Hospitalization)
  Sender: FDA-Public Use
  Company Number: FR-ELI_LILLY_AND_COMPANY-FR202105007785

PATIENT
  Sex: Male
  Weight: 88 kg

DRUGS (2)
  1. BAMLANIVIMAB. [Suspect]
     Active Substance: BAMLANIVIMAB
     Indication: COVID-19
     Dosage: UNK UNK, SINGLE
     Route: 065
     Dates: start: 20210410, end: 20210410
  2. ETESEVIMAB. [Suspect]
     Active Substance: ETESEVIMAB
     Indication: COVID-19
     Dosage: UNK UNK, SINGLE
     Route: 065
     Dates: start: 20210410, end: 20210410

REACTIONS (3)
  - Transient ischaemic attack [Recovered/Resolved]
  - Motor dysfunction [Unknown]
  - Sensory loss [Unknown]

NARRATIVE: CASE EVENT DATE: 20210418
